FAERS Safety Report 25858055 (Version 1)
Quarter: 2025Q3

REPORT INFORMATION
  Report Type: Spontaneous
  Country: JP (occurrence: JP)
  Receive Date: 20250929
  Receipt Date: 20250929
  Transmission Date: 20251021
  Serious: Yes (Death, Other)
  Sender: ALEXION PHARMACEUTICALS
  Company Number: JP-ASTRAZENECA-250017805_063010_P_1

PATIENT
  Age: 73 Year
  Sex: Male

DRUGS (1)
  1. DAPAGLIFLOZIN [Suspect]
     Active Substance: DAPAGLIFLOZIN
     Indication: Type 2 diabetes mellitus

REACTIONS (7)
  - Eczema [Recovering/Resolving]
  - Hyperglycaemia [Unknown]
  - Urinary incontinence [Unknown]
  - Death [Fatal]
  - Foot amputation [Unknown]
  - General physical health deterioration [Unknown]
  - Eating disorder [Unknown]

NARRATIVE: CASE EVENT DATE: 20250101
